FAERS Safety Report 14710870 (Version 1)
Quarter: 2018Q2

REPORT INFORMATION
  Report Type: Spontaneous
  Country: US (occurrence: US)
  Receive Date: 20180403
  Receipt Date: 20180403
  Transmission Date: 20180711
  Serious: Yes (Death, Other)
  Sender: FDA-Public Use
  Company Number: US-TARO PHARMACEUTICALS USA.,INC-2018SUN00192

PATIENT
  Age: 26 Year
  Sex: Male

DRUGS (1)
  1. ACETAMINOPHEN. [Suspect]
     Active Substance: ACETAMINOPHEN
     Indication: PRODUCT USED FOR UNKNOWN INDICATION
     Dosage: UNK
     Route: 065

REACTIONS (12)
  - Electrocardiogram QRS complex prolonged [Unknown]
  - Metabolic acidosis [Unknown]
  - Respiratory depression [Unknown]
  - Acute kidney injury [Unknown]
  - Toxicity to various agents [Fatal]
  - Hypotension [Unknown]
  - Bradycardia [Unknown]
  - Depressed level of consciousness [Unknown]
  - Coagulopathy [Unknown]
  - Leukocytosis [Unknown]
  - Arrhythmia [Unknown]
  - Anion gap [Unknown]
